FAERS Safety Report 5889048-8 (Version None)
Quarter: 2008Q3

REPORT INFORMATION
  Report Type: 
  Country: None (occurrence: None)
  Receive Date: 20080919
  Receipt Date: 20080729
  Transmission Date: 20090109
  Serious: No
  Sender: FDA-Public Use
  Company Number: US-BAYER-200823188NA

PATIENT
  Age: 64 Year
  Sex: Male

DRUGS (11)
  1. LEVITRA [Suspect]
     Indication: ERECTILE DYSFUNCTION
     Dosage: TOTAL DAILY DOSE: 20 MG  UNIT DOSE: 20 MG
     Route: 048
     Dates: start: 20080401, end: 20080401
  2. LEVITRA [Suspect]
     Dosage: TOTAL DAILY DOSE: 20 MG  UNIT DOSE: 20 MG
     Route: 048
     Dates: start: 20080401, end: 20080401
  3. LEVITRA [Suspect]
     Route: 048
     Dates: start: 20040101
  4. LEVITRA [Suspect]
     Dosage: TOTAL DAILY DOSE: 20 MG  UNIT DOSE: 20 MG
     Route: 048
     Dates: start: 20080401, end: 20080401
  5. VYTORIN [Concomitant]
  6. DIOVAN [Concomitant]
  7. METOPROLOL TARTRATE [Concomitant]
  8. GLYBURIDE [Concomitant]
  9. METFORMIN HCL [Concomitant]
  10. BENAZEPRIL HYDROCHLORIDE [Concomitant]
  11. MINOXIDIL [Concomitant]

REACTIONS (1)
  - ERECTILE DYSFUNCTION [None]
